FAERS Safety Report 13738957 (Version 1)
Quarter: 2017Q3

REPORT INFORMATION
  Report Type: Spontaneous
  Country: US (occurrence: US)
  Receive Date: 20170710
  Receipt Date: 20170710
  Transmission Date: 20171127
  Serious: Yes (Other)
  Sender: FDA-Public Use
  Company Number: US-SAOL THERAPEUTICS-2017SAO00966

PATIENT
  Age: 56 Year
  Sex: Female
  Weight: 104.31 kg

DRUGS (5)
  1. BACLOFEN. [Suspect]
     Active Substance: BACLOFEN
     Indication: PAIN
     Dosage: 40.0 ?G, \DAY
     Route: 037
     Dates: start: 20170330
  2. HYDROMORPHONE [Suspect]
     Active Substance: HYDROMORPHONE
     Dosage: 12.001 MG, \DAY
     Route: 037
  3. BACLOFEN. [Suspect]
     Active Substance: BACLOFEN
     Indication: BACK PAIN
  4. CLONIDINE. [Suspect]
     Active Substance: CLONIDINE
     Dosage: 160.02 ?G, \DAY
     Route: 037
  5. BUPIVACAINE. [Suspect]
     Active Substance: BUPIVACAINE
     Dosage: 6.001 MG, \DAY
     Route: 037

REACTIONS (5)
  - Pain [Recovered/Resolved]
  - Complication associated with device [Recovered/Resolved]
  - Withdrawal syndrome [Recovered/Resolved]
  - Off label use [Unknown]
  - Malaise [Unknown]

NARRATIVE: CASE EVENT DATE: 20170525
